FAERS Safety Report 26218483 (Version 1)
Quarter: 2025Q4

REPORT INFORMATION
  Report Type: Spontaneous
  Country: JP (occurrence: JP)
  Receive Date: 20251231
  Receipt Date: 20251231
  Transmission Date: 20260117
  Serious: Yes (Hospitalization)
  Sender: ROCHE
  Company Number: JP-CHUGAI-2025042995AA

PATIENT
  Age: 76 Year
  Sex: Female

DRUGS (1)
  1. ACTEMRA [Suspect]
     Active Substance: TOCILIZUMAB
     Indication: Giant cell arteritis
     Dosage: UNK
     Route: 058

REACTIONS (6)
  - Lactic acidosis [Unknown]
  - Cholangitis [Unknown]
  - Renal disorder [Unknown]
  - Anaemia [Unknown]
  - Liver abscess [Unknown]
  - Clostridial infection [Unknown]
